FAERS Safety Report 10562250 (Version 1)
Quarter: 2014Q4

REPORT INFORMATION
  Report Type: Spontaneous
  Country: US (occurrence: None)
  Receive Date: 20141031
  Receipt Date: 20141031
  Transmission Date: 20150529
  Serious: Yes (Other)
  Sender: FDA-Public Use
  Company Number: KAD201410-001345

PATIENT
  Sex: Male

DRUGS (2)
  1. RIBAVIRIN (RIBAVIRIN) [Suspect]
     Active Substance: RIBAVIRIN
  2. INTRON A [Suspect]
     Active Substance: INTERFERON ALFA-2B

REACTIONS (3)
  - Hepatic cancer [None]
  - Hepatic cirrhosis [None]
  - Malaise [None]
